FAERS Safety Report 14669181 (Version 1)
Quarter: 2018Q1

REPORT INFORMATION
  Report Type: Spontaneous
  Country: US (occurrence: US)
  Receive Date: 20180321
  Receipt Date: 20180321
  Transmission Date: 20180509
  Serious: No
  Sender: FDA-Public Use
  Company Number: None

PATIENT
  Age: 67 Year
  Sex: Female
  Weight: 62.1 kg

DRUGS (1)
  1. PROLIA [Suspect]
     Active Substance: DENOSUMAB
     Indication: OSTEOPOROSIS
     Dosage: ?          OTHER ROUTE:INJECTION?
     Dates: start: 20180306

REACTIONS (3)
  - Musculoskeletal chest pain [None]
  - Muscle spasms [None]
  - Arthralgia [None]

NARRATIVE: CASE EVENT DATE: 20180310
